FAERS Safety Report 17339867 (Version 1)
Quarter: 2020Q1

REPORT INFORMATION
  Report Type: Report from Study
  Country: BR (occurrence: BR)
  Receive Date: 20200129
  Receipt Date: 20200129
  Transmission Date: 20200409
  Serious: Yes (Other)
  Sender: FDA-Public Use
  Company Number: BR-UCBSA-2020003608

PATIENT
  Age: 38 Year
  Sex: Female
  Weight: 65 kg

DRUGS (3)
  1. CLOB-X [Concomitant]
     Indication: PSORIASIS
     Dosage: 1-3 APPLICATION A DAY
     Route: 061
     Dates: start: 201910
  2. ESCITALOPRAM [ESCITALOPRAM OXALATE] [Concomitant]
     Active Substance: ESCITALOPRAM OXALATE
     Indication: ANXIETY
     Dosage: 20 MILLIGRAM, ONCE DAILY (QD)
     Route: 048
  3. CERTOLIZUMAB PEGOL CD [Suspect]
     Active Substance: CERTOLIZUMAB PEGOL
     Indication: CROHN^S DISEASE
     Dosage: 400 MILLIGRAM, EV 4 WEEKS

REACTIONS (4)
  - Anxiety [Not Recovered/Not Resolved]
  - Injection site induration [Recovered/Resolved]
  - Injection site pain [Recovered/Resolved]
  - Psoriasis [Recovering/Resolving]

NARRATIVE: CASE EVENT DATE: 201909
